FAERS Safety Report 11327471 (Version 3)
Quarter: 2015Q4

REPORT INFORMATION
  Report Type: Spontaneous
  Country: US (occurrence: US)
  Receive Date: 20150731
  Receipt Date: 20151005
  Transmission Date: 20160304
  Serious: No
  Sender: FDA-Public Use
  Company Number: US-PFIZER INC-2015254755

PATIENT
  Age: 60 Year
  Sex: Female
  Weight: 91 kg

DRUGS (7)
  1. VALIUM [Suspect]
     Active Substance: DIAZEPAM
     Indication: MUSCLE SPASMS
     Dosage: 5 MG, 3X/DAY
     Route: 048
     Dates: start: 20150608
  2. LYRICA [Suspect]
     Active Substance: PREGABALIN
     Indication: BACK INJURY
  3. LYRICA [Suspect]
     Active Substance: PREGABALIN
     Indication: JOINT INJURY
     Dosage: 75 MG, 1X/DAY
     Route: 048
     Dates: start: 20150716, end: 201507
  4. LYRICA [Suspect]
     Active Substance: PREGABALIN
     Indication: MUSCULOSKELETAL DISCOMFORT
  5. VALIUM [Suspect]
     Active Substance: DIAZEPAM
     Dosage: 2.5 MG, 3X/DAY
     Route: 048
     Dates: start: 20150709
  6. LYRICA [Suspect]
     Active Substance: PREGABALIN
     Indication: NECK INJURY
     Dosage: 75 MG, 2X/DAY
     Route: 048
     Dates: start: 20150617
  7. RELPAX [Suspect]
     Active Substance: ELETRIPTAN HYDROBROMIDE
     Dosage: UNK

REACTIONS (13)
  - Wound haemorrhage [Recovering/Resolving]
  - Disturbance in attention [Recovering/Resolving]
  - Balance disorder [Recovering/Resolving]
  - Fall [Recovering/Resolving]
  - Fatigue [Not Recovered/Not Resolved]
  - Contusion [Recovering/Resolving]
  - Memory impairment [Not Recovered/Not Resolved]
  - Somnolence [Recovering/Resolving]
  - Wound complication [Not Recovered/Not Resolved]
  - Clumsiness [Recovered/Resolved]
  - Laceration [Recovering/Resolving]
  - Product use issue [Not Recovered/Not Resolved]
  - Dizziness [Recovering/Resolving]

NARRATIVE: CASE EVENT DATE: 201506
